FAERS Safety Report 5806404-4 (Version None)
Quarter: 2008Q3

REPORT INFORMATION
  Report Type: 
  Country: None (occurrence: None)
  Receive Date: 20080708
  Receipt Date: 20080701
  Transmission Date: 20090109
  Serious: Yes (Hospitalization)
  Sender: FDA-Public Use
  Company Number: US023996

PATIENT
  Age: 64 Year
  Sex: Male
  Weight: 98.4306 kg

DRUGS (4)
  1. TREANDA [Suspect]
     Indication: CHRONIC LYMPHOCYTIC LEUKAEMIA
     Dosage: RECOMMENDED DOSE Q 28 DAYS INTRAVENOUS
     Route: 042
     Dates: start: 20080522
  2. NIASPAN [Concomitant]
  3. ASPIRIN [Concomitant]
  4. EFFEROX /01233801/ [Concomitant]

REACTIONS (7)
  - HERPES ZOSTER [None]
  - LYMPHOCYTE COUNT DECREASED [None]
  - ORAL CANDIDIASIS [None]
  - PLATELET COUNT DECREASED [None]
  - RED BLOOD CELL COUNT DECREASED [None]
  - STAPHYLOCOCCAL INFECTION [None]
  - WHITE BLOOD CELL COUNT DECREASED [None]
